FAERS Safety Report 16570306 (Version 2)
Quarter: 2019Q3

REPORT INFORMATION
  Report Type: Report from Study
  Country: CA (occurrence: CA)
  Receive Date: 20190715
  Receipt Date: 20190808
  Transmission Date: 20191004
  Serious: Yes (Hospitalization, Other)
  Sender: FDA-Public Use
  Company Number: CA-EMD SERONO-9090919

PATIENT
  Sex: Male

DRUGS (1)
  1. REBIF [Suspect]
     Active Substance: INTERFERON BETA-1A
     Indication: MULTIPLE SCLEROSIS
     Dosage: REBISLIDE
     Route: 058
     Dates: start: 20190321

REACTIONS (5)
  - Drug ineffective [Unknown]
  - Pneumonia [Recovering/Resolving]
  - Intestinal stenosis [Unknown]
  - Nuclear magnetic resonance imaging abnormal [Not Recovered/Not Resolved]
  - Asthenia [Not Recovered/Not Resolved]

NARRATIVE: CASE EVENT DATE: 2019
